FAERS Safety Report 4837353-6 (Version None)
Quarter: 2005Q4

REPORT INFORMATION
  Report Type: 
  Country: None (occurrence: None)
  Receive Date: 20051128
  Receipt Date: 20051115
  Transmission Date: 20060501
  Serious: Yes (Hospitalization)
  Sender: FDA-Public Use
  Company Number: US-JNJFOC-20050906891

PATIENT
  Sex: Female
  Weight: 71.22 kg

DRUGS (22)
  1. REMICADE [Suspect]
     Route: 042
  2. REMICADE [Suspect]
     Route: 042
  3. ZOCOR [Concomitant]
  4. SYNTHROID [Concomitant]
  5. MAXZIDE [Concomitant]
  6. MAXZIDE [Concomitant]
  7. NORVASC [Concomitant]
  8. LEXAPRO [Concomitant]
  9. ASPIRIN [Concomitant]
  10. ASCORBIC ACID [Concomitant]
  11. MULTI-VITAMIN [Concomitant]
  12. MULTI-VITAMIN [Concomitant]
  13. MULTI-VITAMIN [Concomitant]
  14. MULTI-VITAMIN [Concomitant]
  15. MULTI-VITAMIN [Concomitant]
  16. MULTI-VITAMIN [Concomitant]
  17. MULTI-VITAMIN [Concomitant]
  18. MULTI-VITAMIN [Concomitant]
  19. ACIPHEX [Concomitant]
  20. LORTAB [Concomitant]
  21. LORTAB [Concomitant]
  22. KLONOPIN [Concomitant]

REACTIONS (11)
  - FACIAL PAIN [None]
  - GAMMOPATHY [None]
  - LIVER FUNCTION TEST ABNORMAL [None]
  - LUNG INFILTRATION [None]
  - MALAISE [None]
  - MOUTH ULCERATION [None]
  - OCULAR DISCOMFORT [None]
  - PERIORBITAL OEDEMA [None]
  - PLEURAL EFFUSION [None]
  - PLEURISY VIRAL [None]
  - VOCAL CORD DISORDER [None]
